FAERS Safety Report 13069179 (Version 4)
Quarter: 2017Q1

REPORT INFORMATION
  Report Type: Spontaneous
  Country: US (occurrence: US)
  Receive Date: 20161228
  Receipt Date: 20170314
  Transmission Date: 20170428
  Serious: No
  Sender: FDA-Public Use
  Company Number: US-PFIZER INC-2016590072

PATIENT
  Age: 66 Year
  Sex: Female

DRUGS (3)
  1. CELEBREX [Suspect]
     Active Substance: CELECOXIB
     Indication: ARTHRALGIA
     Dosage: 200 MG, DAILY
  2. IBUPROFEN. [Concomitant]
     Active Substance: IBUPROFEN
     Indication: SLEEP DISORDER
     Dosage: 2 IBUPROFEN AT BEDTIME
  3. CELEBREX [Suspect]
     Active Substance: CELECOXIB
     Indication: PAIN
     Dosage: 200 MG, 1X/DAY

REACTIONS (2)
  - Spinal column stenosis [Recovering/Resolving]
  - Joint dislocation [Recovering/Resolving]

NARRATIVE: CASE EVENT DATE: 2000
